FAERS Safety Report 11937146 (Version 8)
Quarter: 2018Q1

REPORT INFORMATION
  Report Type: Spontaneous
  Country: JP (occurrence: JP)
  Receive Date: 20160121
  Receipt Date: 20180327
  Transmission Date: 20180508
  Serious: Yes (Life-Threatening, Hospitalization)
  Sender: FDA-Public Use
  Company Number: PHJP2016JP001269

PATIENT
  Age: 9 Year
  Sex: Female
  Weight: 31.8 kg

DRUGS (8)
  1. FAMOTIDINE. [Concomitant]
     Active Substance: FAMOTIDINE
     Indication: PROPHYLAXIS
     Dosage: 20 MG, QD
     Route: 048
     Dates: start: 20150724, end: 20160621
  2. PREDONINE [Concomitant]
     Active Substance: PREDNISOLONE
     Dosage: 10 MG, TID, EVERY OTHER DAY, TAPERING
     Route: 048
     Dates: start: 20151225, end: 20160621
  3. PREDONINE [Concomitant]
     Active Substance: PREDNISOLONE
     Indication: FOCAL SEGMENTAL GLOMERULOSCLEROSIS
     Dosage: 20 MG, TID
     Route: 048
     Dates: start: 20150724, end: 20150827
  4. MONTELUKAST SODIUM. [Concomitant]
     Active Substance: MONTELUKAST SODIUM
     Indication: PRODUCT USED FOR UNKNOWN INDICATION
     Dosage: UNK
     Route: 065
  5. PREDONINE [Concomitant]
     Active Substance: PREDNISOLONE
     Dosage: DOSE PER ADMINISTRATION: 10 MG, 15 MG, UNK
     Route: 048
     Dates: start: 20150828, end: 20150917
  6. NEORAL [Suspect]
     Active Substance: CYCLOSPORINE
     Indication: FOCAL SEGMENTAL GLOMERULOSCLEROSIS
     Dosage: 50 MG, BID
     Route: 048
     Dates: start: 20150904, end: 20150925
  7. NEORAL [Suspect]
     Active Substance: CYCLOSPORINE
     Indication: NEPHROTIC SYNDROME
  8. PREDONINE [Concomitant]
     Active Substance: PREDNISOLONE
     Dosage: 10 MG, TID
     Route: 048
     Dates: start: 20150918, end: 20151224

REACTIONS (6)
  - Product use in unapproved indication [Unknown]
  - Headache [Recovered/Resolved]
  - Reversible cerebral vasoconstriction syndrome [Recovered/Resolved]
  - Insomnia [Unknown]
  - Hypertension [Recovered/Resolved]
  - Cerebral vasoconstriction [Recovered/Resolved]

NARRATIVE: CASE EVENT DATE: 20150904
